FAERS Safety Report 5542733-X (Version None)
Quarter: 2007Q4

REPORT INFORMATION
  Report Type: 
  Country: None (occurrence: None)
  Receive Date: 20071206
  Receipt Date: 20071121
  Transmission Date: 20080405
  Serious: Yes (Hospitalization)
  Sender: FDA-Public Use
  Company Number: 2007BM000186

PATIENT
  Age: 7 Month
  Sex: Female

DRUGS (2)
  1. PREDNISOLONE [Suspect]
     Indication: HAEMANGIOMA
     Dosage: 15 MG;QD;PO
     Route: 048
  2. ORAPRED [Suspect]

REACTIONS (7)
  - GRUNTING [None]
  - INTERCOSTAL RETRACTION [None]
  - LUNG INFILTRATION [None]
  - PNEUMOCYSTIS JIROVECI PNEUMONIA [None]
  - PYREXIA [None]
  - RESPIRATORY DISTRESS [None]
  - RESPIRATORY RATE INCREASED [None]
